FAERS Safety Report 24345966 (Version 3)
Quarter: 2025Q3

REPORT INFORMATION
  Report Type: Spontaneous
  Country: EU (occurrence: EU)
  Receive Date: 20240920
  Receipt Date: 20250929
  Transmission Date: 20251020
  Serious: Yes (Other)
  Sender: SANDOZ
  Company Number: EU-SZ09-PHHY2015PL150316

PATIENT
  Age: 56 Year
  Sex: Female

DRUGS (14)
  1. BASILIXIMAB [Suspect]
     Active Substance: BASILIXIMAB
     Indication: Immunosuppression
     Route: 065
  2. BASILIXIMAB [Suspect]
     Active Substance: BASILIXIMAB
     Indication: Transplant
     Route: 065
  3. BASILIXIMAB [Suspect]
     Active Substance: BASILIXIMAB
     Route: 065
  4. MYCOPHENOLATE MOFETIL [Suspect]
     Active Substance: MYCOPHENOLATE MOFETIL
     Indication: Immunosuppression
     Route: 065
  5. MYCOPHENOLATE MOFETIL [Suspect]
     Active Substance: MYCOPHENOLATE MOFETIL
     Indication: Transplant
     Route: 065
  6. MYCOPHENOLATE MOFETIL [Suspect]
     Active Substance: MYCOPHENOLATE MOFETIL
     Route: 065
  7. PREDNISONE [Suspect]
     Active Substance: PREDNISONE
     Indication: Immunosuppression
     Route: 065
  8. PREDNISONE [Suspect]
     Active Substance: PREDNISONE
     Indication: Transplant
     Route: 065
  9. PREDNISONE [Suspect]
     Active Substance: PREDNISONE
     Route: 065
  10. TACROLIMUS [Suspect]
     Active Substance: TACROLIMUS
     Indication: Immunosuppression
     Route: 065
  11. TACROLIMUS [Suspect]
     Active Substance: TACROLIMUS
     Indication: Transplant
     Route: 065
  12. TACROLIMUS [Suspect]
     Active Substance: TACROLIMUS
     Route: 065
  13. TACROLIMUS [Suspect]
     Active Substance: TACROLIMUS
     Route: 065
  14. TACROLIMUS [Suspect]
     Active Substance: TACROLIMUS
     Route: 065

REACTIONS (22)
  - Diastolic dysfunction [Unknown]
  - Chronic kidney disease [Unknown]
  - Renal disorder [Unknown]
  - Dyslipidaemia [Unknown]
  - Ventricular hypertrophy [Unknown]
  - Diabetes mellitus [Not Recovered/Not Resolved]
  - Hyperuricaemia [Unknown]
  - Hypertension [Unknown]
  - Left ventricular hypertrophy [Unknown]
  - Chronic kidney disease [Unknown]
  - Ventricular hypertrophy [Unknown]
  - Disease progression [Unknown]
  - Dyslipidaemia [Unknown]
  - Hyperuricaemia [Unknown]
  - Left ventricular dysfunction [Unknown]
  - Diastolic dysfunction [Unknown]
  - Ventricular remodelling [Unknown]
  - Hypertension [Unknown]
  - Diabetes mellitus [Unknown]
  - Hypertension [Unknown]
  - Disease progression [Unknown]
  - Off label use [Unknown]
